FAERS Safety Report 13758258 (Version 3)
Quarter: 2017Q3

REPORT INFORMATION
  Report Type: Spontaneous
  Country: US (occurrence: US)
  Receive Date: 20170717
  Receipt Date: 20170911
  Transmission Date: 20171127
  Serious: Yes (Other)
  Sender: FDA-Public Use
  Company Number: US-PFIZER INC-2017307867

PATIENT
  Age: 69 Year
  Sex: Male

DRUGS (1)
  1. LIDOCAINE HCL [Suspect]
     Active Substance: LIDOCAINE HYDROCHLORIDE
     Indication: ANAESTHESIA
     Dosage: 30 MG, SINGLE
     Route: 058
     Dates: start: 20170614, end: 20170614

REACTIONS (5)
  - Rash vesicular [Recovering/Resolving]
  - Rash [Unknown]
  - Reaction to preservatives [Unknown]
  - Skin exfoliation [Unknown]
  - Inflammatory pain [Unknown]

NARRATIVE: CASE EVENT DATE: 20170614
